FAERS Safety Report 17439296 (Version 2)
Quarter: 2020Q1

REPORT INFORMATION
  Report Type: Spontaneous
  Country: IL (occurrence: IL)
  Receive Date: 20200220
  Receipt Date: 20200319
  Transmission Date: 20200409
  Serious: Yes (Other)
  Sender: FDA-Public Use
  Company Number: IL-AMGEN-ISRSP2020025250

PATIENT
  Age: 65 Year
  Sex: Female
  Weight: 58 kg

DRUGS (10)
  1. SOMATULINE AUTOGEL [Suspect]
     Active Substance: LANREOTIDE ACETATE
     Indication: NEUROENDOCRINE TUMOUR
     Dosage: 120 MILLIGRAM, QMO (28 DAYS)
     Route: 058
     Dates: start: 20140326
  2. SOMATULINE AUTOGEL [Suspect]
     Active Substance: LANREOTIDE ACETATE
     Dosage: 180 MILLIGRAM, QMO
     Route: 058
  3. BONDORMIN [Concomitant]
     Active Substance: BROTIZOLAM
     Dosage: 0.25 MILLIGRAM
  4. SOMATULINE AUTOGEL [Suspect]
     Active Substance: LANREOTIDE ACETATE
     Dosage: 120 MILLIGRAM, QMO (28 DAYS)
     Route: 058
  5. FLUCONAZOLE. [Concomitant]
     Active Substance: FLUCONAZOLE
     Dosage: UNK
  6. ALPRAZOLAM. [Concomitant]
     Active Substance: ALPRAZOLAM
     Dosage: 1.0 MILLIGRAM
  7. EUTHYROX [Concomitant]
     Active Substance: LEVOTHYROXINE SODIUM
     Dosage: 100 MICROGRAM
  8. BEDODEKA [Concomitant]
     Dosage: 1000 MICROGRAM
  9. PROLIA [Suspect]
     Active Substance: DENOSUMAB
     Indication: OSTEOPOROSIS
     Dosage: 60 MILLIGRAM, Q6MO
     Route: 065
  10. DAKTARIN [MICONAZOLE] [Concomitant]
     Active Substance: MICONAZOLE
     Dosage: UNK
     Route: 048

REACTIONS (4)
  - Fungal infection [Unknown]
  - Cholelithiasis [Unknown]
  - Carcinoid tumour of the stomach [Unknown]
  - Colon adenoma [Unknown]

NARRATIVE: CASE EVENT DATE: 2018
